FAERS Safety Report 7032376-3 (Version None)
Quarter: 2010Q4

REPORT INFORMATION
  Report Type: 
  Country: None (occurrence: None)
  Receive Date: 20101007
  Receipt Date: 20101001
  Transmission Date: 20110411
  Serious: Yes (Disabling)
  Sender: FDA-Public Use
  Company Number: JP-SANOFI-AVENTIS-2010SA051584

PATIENT
  Age: 76 Year
  Sex: Male
  Weight: 60.7 kg

DRUGS (6)
  1. TAXOTERE [Suspect]
     Dosage: TWICE A MONTH
     Route: 042
     Dates: start: 20080807, end: 20100506
  2. DEXAMETHASONE [Concomitant]
     Route: 048
     Dates: start: 20090123
  3. LEUPLIN [Concomitant]
     Route: 058
     Dates: start: 20040412
  4. TORASEMIDE [Concomitant]
     Indication: LYMPHOEDEMA
     Route: 048
     Dates: start: 20080512
  5. BLOPRESS [Concomitant]
     Indication: HYPERTENSION
     Route: 048
     Dates: start: 20070903, end: 20100722
  6. ZOMETA [Concomitant]
     Route: 042
     Dates: start: 20090701

REACTIONS (3)
  - APLASTIC ANAEMIA [None]
  - HAEMORRHAGIC DIATHESIS [None]
  - MALAISE [None]
